FAERS Safety Report 15579699 (Version 1)
Quarter: 2018Q4

REPORT INFORMATION
  Report Type: Spontaneous
  Country: US (occurrence: US)
  Receive Date: 20181102
  Receipt Date: 20181102
  Transmission Date: 20190205
  Serious: Yes (Other)
  Sender: FDA-Public Use
  Company Number: None

PATIENT
  Age: 52 Year
  Sex: Female
  Weight: 108 kg

DRUGS (2)
  1. DULOXOTINE 60MG ER [Suspect]
     Active Substance: DULOXETINE
     Indication: PAIN
     Dosage: ?          QUANTITY:1 CAPSULE(S);?
     Route: 048
     Dates: start: 20181027
  2. DULOXOTINE 60MG ER [Suspect]
     Active Substance: DULOXETINE
     Indication: DEPRESSION
     Dosage: ?          QUANTITY:1 CAPSULE(S);?
     Route: 048
     Dates: start: 20181027

REACTIONS (6)
  - Crying [None]
  - Insurance issue [None]
  - Anger [None]
  - Muscle tightness [None]
  - Inability to afford medication [None]
  - Product substitution issue [None]

NARRATIVE: CASE EVENT DATE: 20181027
